FAERS Safety Report 23706565 (Version 1)
Quarter: 2024Q2

REPORT INFORMATION
  Report Type: Other
  Country: IN (occurrence: IN)
  Receive Date: 20240404
  Receipt Date: 20240404
  Transmission Date: 20240716
  Serious: Yes (Other)
  Sender: FDA-Public Use
  Company Number: IN-Merck Healthcare KGaA-2024017624

PATIENT
  Sex: Female
  Weight: 4 kg

DRUGS (1)
  1. METFORMIN [Suspect]
     Active Substance: METFORMIN HYDROCHLORIDE
     Indication: Gestational diabetes
     Dosage: PRODUCT TAKEN BY MOTHER
     Route: 064

REACTIONS (2)
  - Hypoglycaemia neonatal [Unknown]
  - Foetal exposure during pregnancy [Recovered/Resolved]
